FAERS Safety Report 5896497-0 (Version None)
Quarter: 2008Q3

REPORT INFORMATION
  Report Type: 
  Country: None (occurrence: None)
  Receive Date: 20080924
  Receipt Date: 20070628
  Transmission Date: 20090109
  Serious: No
  Sender: FDA-Public Use
  Company Number: US-BAYER-200712023BWH

PATIENT

DRUGS (2)
  1. AVELOX [Suspect]
     Indication: SINUSITIS
     Dosage: TOTAL DAILY DOSE: 400 MG  UNIT DOSE: 400 MG
     Route: 048
  2. CIPRO [Concomitant]
     Indication: SINUSITIS

REACTIONS (1)
  - URTICARIA [None]
